FAERS Safety Report 4667296-2 (Version None)
Quarter: 2005Q2

REPORT INFORMATION
  Report Type: 
  Country: None (occurrence: None)
  Receive Date: 20050519
  Receipt Date: 20050519
  Transmission Date: 20051028
  Serious: Yes (Hospitalization)
  Sender: FDA-Public Use
  Company Number: None

PATIENT
  Age: 76 Year
  Sex: Male

DRUGS (1)
  1. CLINDAMYCIN HCL [Suspect]
     Indication: PNEUMONIA ASPIRATION
     Dosage: 600 MG IV QH
     Route: 042

REACTIONS (3)
  - AGRANULOCYTOSIS [None]
  - HAEMOGLOBIN DECREASED [None]
  - WHITE BLOOD CELL COUNT DECREASED [None]
